FAERS Safety Report 12485178 (Version 1)
Quarter: 2016Q2

REPORT INFORMATION
  Report Type: Spontaneous
  Country: KR (occurrence: KR)
  Receive Date: 20160621
  Receipt Date: 20160621
  Transmission Date: 20160815
  Serious: Yes (Hospitalization)
  Sender: FDA-Public Use
  Company Number: KR-SEBELA IRELAND LIMITED-2016SEB00283

PATIENT
  Age: 38 Year
  Sex: Male

DRUGS (4)
  1. AZATHIOPRINE. [Suspect]
     Active Substance: AZATHIOPRINE
     Indication: GLOMERULONEPHRITIS RAPIDLY PROGRESSIVE
     Dosage: 100 MG, 1X/DAY
     Route: 048
  2. METHYLPREDNISOLONE. [Concomitant]
     Active Substance: METHYLPREDNISOLONE
     Indication: GLOMERULONEPHRITIS RAPIDLY PROGRESSIVE
     Dosage: 500 MG (7 MG/KG) FOR THREE CONSECUTIVE DAYS
     Route: 042
  3. CYCLOPHOSPHAMIDE. [Concomitant]
     Active Substance: CYCLOPHOSPHAMIDE
     Indication: GLOMERULONEPHRITIS RAPIDLY PROGRESSIVE
     Dosage: 900 MG [500 MG/BSA (M^2)] EVERY 4 WEEKS A TOTAL OF 6 TIMES
     Route: 042
  4. PREDNISOLONE. [Concomitant]
     Active Substance: PREDNISOLONE
     Indication: GLOMERULONEPHRITIS RAPIDLY PROGRESSIVE
     Dosage: 60 MG DAILY, CONTINUED FOR A MONTH, FOLLOWING WHICH THE DOSE WAS GRADUALLY TAPERED
     Route: 048

REACTIONS (1)
  - Alveolitis allergic [Recovered/Resolved]
